FAERS Safety Report 7284912-X (Version None)
Quarter: 2011Q1

REPORT INFORMATION
  Report Type: 
  Country: None (occurrence: None)
  Receive Date: 20110210
  Receipt Date: 20101223
  Transmission Date: 20110831
  Serious: Yes (Hospitalization)
  Sender: FDA-Public Use
  Company Number: US-BAYER-201016096NA

PATIENT
  Sex: Female
  Weight: 64 kg

DRUGS (8)
  1. LUNESTA [Concomitant]
     Indication: THYROID DISORDER
  2. NSAID'S [Concomitant]
     Indication: ANALGESIC THERAPY
  3. CYTOMEL [Concomitant]
     Indication: THYROID DISORDER
  4. OBTREX [Concomitant]
     Indication: VITAMIN SUPPLEMENTATION
  5. YAZ [Suspect]
     Indication: ACNE
     Dosage: AS USED DOSE: UNK
     Route: 048
     Dates: start: 20070101, end: 20090401
  6. SYNTHROID [Concomitant]
     Indication: THYROID DISORDER
     Dates: start: 20070101, end: 20100101
  7. ALBUTEROL [Concomitant]
  8. YASMIN [Suspect]
     Indication: ACNE
     Dosage: AS USED DOSE: UNK
     Route: 048
     Dates: start: 20040101, end: 20060401

REACTIONS (4)
  - CHOLELITHIASIS [None]
  - CHOLECYSTITIS CHRONIC [None]
  - ABDOMINAL PAIN [None]
  - PAIN [None]
